FAERS Safety Report 10444514 (Version 1)
Quarter: 2014Q3

REPORT INFORMATION
  Report Type: Spontaneous
  Country: SE (occurrence: SE)
  Receive Date: 20140910
  Receipt Date: 20140910
  Transmission Date: 20150326
  Serious: Yes (Other)
  Sender: FDA-Public Use
  Company Number: SE-WATSON-2014-19403

PATIENT
  Age: 41 Year
  Sex: Female
  Weight: 82 kg

DRUGS (1)
  1. ENALAPRIL ACTAVIS [Suspect]
     Active Substance: ENALAPRIL
     Indication: HYPERTENSION
     Dosage: UNK
     Route: 048
     Dates: start: 20060403, end: 20140625

REACTIONS (2)
  - Myalgia [Not Recovered/Not Resolved]
  - Pain [Not Recovered/Not Resolved]

NARRATIVE: CASE EVENT DATE: 2012
